FAERS Safety Report 7404226-4 (Version None)
Quarter: 2011Q1

REPORT INFORMATION
  Report Type: 
  Country: None (occurrence: None)
  Receive Date: 20110331
  Receipt Date: 20110321
  Transmission Date: 20110831
  Serious: Yes (Hospitalization)
  Sender: FDA-Public Use
  Company Number: WAES 1003USA00528

PATIENT
  Age: 65 Year
  Sex: Female

DRUGS (11)
  1. ACYCLOVIR [Concomitant]
  2. NOVALGIN [Concomitant]
  3. BORTEZOMIB [Suspect]
     Indication: MULTIPLE MYELOMA
     Dosage: 1.3 MG/M[2] IV ; 2.3 MG IV ; 1 MG/M[2] IV
     Route: 042
     Dates: start: 20100222, end: 20100409
  4. BORTEZOMIB [Suspect]
     Indication: MULTIPLE MYELOMA
     Dosage: 1.3 MG/M[2] IV ; 2.3 MG IV ; 1 MG/M[2] IV
     Route: 042
     Dates: start: 20100201
  5. BORTEZOMIB [Suspect]
     Indication: MULTIPLE MYELOMA
     Dosage: 1.3 MG/M[2] IV ; 2.3 MG IV ; 1 MG/M[2] IV
     Route: 042
     Dates: start: 20100426
  6. CAP VORINOSTAT [Suspect]
     Indication: MULTIPLE MYELOMA
     Dosage: 400 MG PO ; 400 MG PO ; 400 MG PO ; 300 MG/DAILY PO
     Route: 048
     Dates: start: 20100426
  7. CAP VORINOSTAT [Suspect]
     Indication: MULTIPLE MYELOMA
     Dosage: 400 MG PO ; 400 MG PO ; 400 MG PO ; 300 MG/DAILY PO
     Route: 048
     Dates: start: 20100201
  8. CAP VORINOSTAT [Suspect]
     Indication: MULTIPLE MYELOMA
     Dosage: 400 MG PO ; 400 MG PO ; 400 MG PO ; 300 MG/DAILY PO
     Route: 048
     Dates: start: 20100222, end: 20100305
  9. CAP VORINOSTAT [Suspect]
     Indication: MULTIPLE MYELOMA
     Dosage: 400 MG PO ; 400 MG PO ; 400 MG PO ; 300 MG/DAILY PO
     Route: 048
     Dates: start: 20100315, end: 20100410
  10. PANTOZOL [Concomitant]
  11. ACETYLCYSTEINE [Concomitant]

REACTIONS (9)
  - BUNDLE BRANCH BLOCK RIGHT [None]
  - PYREXIA [None]
  - UPPER RESPIRATORY TRACT INFECTION [None]
  - GENERAL PHYSICAL HEALTH DETERIORATION [None]
  - THROMBOSIS [None]
  - TACHYCARDIA [None]
  - SINUSITIS [None]
  - DIARRHOEA [None]
  - TACHYPNOEA [None]
